FAERS Safety Report 24819921 (Version 1)
Quarter: 2025Q1

REPORT INFORMATION
  Report Type: Spontaneous
  Country: EU (occurrence: EU)
  Receive Date: 20250108
  Receipt Date: 20250108
  Transmission Date: 20250408
  Serious: Yes (Other)
  Sender: ETHYPHARM
  Company Number: None

PATIENT

DRUGS (6)
  1. BUPRENORPHINE HYDROCHLORIDE [Suspect]
     Active Substance: BUPRENORPHINE HYDROCHLORIDE
     Dates: start: 20230815, end: 20230815
  2. BUPRENORPHINE HYDROCHLORIDE [Suspect]
     Active Substance: BUPRENORPHINE HYDROCHLORIDE
  3. KETAMINE [Suspect]
     Active Substance: KETAMINE
     Route: 045
     Dates: start: 20230815, end: 20230815
  4. KETAMINE [Suspect]
     Active Substance: KETAMINE
  5. CANNABIS SATIVA SUBSP. INDICA TOP [Suspect]
     Active Substance: CANNABIS SATIVA SUBSP. INDICA TOP
  6. ALCOHOL [Suspect]
     Active Substance: ALCOHOL
     Route: 048

REACTIONS (5)
  - Drug abuse [Not Recovered/Not Resolved]
  - Homeless [Not Recovered/Not Resolved]
  - Poisoning [Recovered/Resolved]
  - Coma [Recovered/Resolved]
  - Agitation [Recovered/Resolved]

NARRATIVE: CASE EVENT DATE: 20230815
